FAERS Safety Report 5376731-6 (Version None)
Quarter: 2007Q2

REPORT INFORMATION
  Report Type: 
  Country: None (occurrence: None)
  Receive Date: 20070629
  Receipt Date: 20070629
  Transmission Date: 20071010
  Serious: No
  Sender: FDA-Public Use
  Company Number: None

PATIENT

DRUGS (1)
  1. NASAREL [Suspect]
     Dosage: ONE SPRAY DAILY NASAL
     Route: 045

REACTIONS (2)
  - MALAISE [None]
  - SINUS DISORDER [None]
